FAERS Safety Report 15713041 (Version 3)
Quarter: 2019Q1

REPORT INFORMATION
  Report Type: Spontaneous
  Country: JP (occurrence: JP)
  Receive Date: 20181212
  Receipt Date: 20190328
  Transmission Date: 20190417
  Serious: Yes (Hospitalization, Other)
  Sender: FDA-Public Use
  Company Number: JP-ASTRAZENECA-2018SF61287

PATIENT
  Age: 73 Year
  Sex: Female
  Weight: 48 kg

DRUGS (2)
  1. IMFINZI [Suspect]
     Active Substance: DURVALUMAB
     Indication: NON-SMALL CELL LUNG CANCER
     Dosage: 10 MG/KG EVERY TWO WEEKS
     Route: 041
     Dates: start: 20181116, end: 20181130
  2. ELIQUIS [Concomitant]
     Active Substance: APIXABAN
     Route: 048
     Dates: start: 20181127, end: 20181201

REACTIONS (7)
  - Radiation pneumonitis [Recovered/Resolved with Sequelae]
  - Pulmonary embolism [Not Recovered/Not Resolved]
  - Pulmonary artery thrombosis [Recovered/Resolved]
  - Pneumonitis [Not Recovered/Not Resolved]
  - Respiratory failure [Unknown]
  - Deep vein thrombosis [Unknown]
  - Malignant neoplasm progression [Unknown]

NARRATIVE: CASE EVENT DATE: 20181120
